FAERS Safety Report 6471346-0 (Version None)
Quarter: 2009Q4

REPORT INFORMATION
  Report Type: 
  Country: None (occurrence: None)
  Receive Date: 20091203
  Receipt Date: 20081231
  Transmission Date: 20100525
  Serious: Yes (Hospitalization)
  Sender: FDA-Public Use
  Company Number: US-ELI_LILLY_AND_COMPANY-US200802004197

PATIENT
  Sex: Female

DRUGS (18)
  1. FORTEO [Suspect]
     Indication: OSTEOPOROSIS
     Dosage: 20 UG, DAILY (1/D)
     Dates: start: 20080206, end: 20080211
  2. FORTEO [Suspect]
     Dosage: 20 UG, DAILY (1/D)
     Dates: start: 20080218
  3. METHOTREXATE [Concomitant]
  4. PREDNISONE [Concomitant]
  5. LIPITOR [Concomitant]
  6. ZINECARD [Concomitant]
  7. CLONIDINE [Concomitant]
  8. METOPROLOL [Concomitant]
  9. ZOLOFT [Concomitant]
  10. XANAX [Concomitant]
  11. FOLIC ACID [Concomitant]
  12. POTASSIUM [Concomitant]
  13. VICODIN [Concomitant]
  14. VITAMIN D [Concomitant]
  15. CALCIUM                                 /N/A/ [Concomitant]
  16. LOVAZA [Concomitant]
  17. COLACE [Concomitant]
  18. MILK OF MAGNESIA TAB [Concomitant]

REACTIONS (15)
  - ABDOMINAL DISCOMFORT [None]
  - ABSCESS INTESTINAL [None]
  - ASTHENIA [None]
  - BLOOD GLUCOSE INCREASED [None]
  - ENTROPION [None]
  - EYELID PTOSIS [None]
  - HYPOPHAGIA [None]
  - INJECTION SITE ERYTHEMA [None]
  - INJECTION SITE HAEMORRHAGE [None]
  - INJECTION SITE IRRITATION [None]
  - INJECTION SITE PAIN [None]
  - RECTAL ABSCESS [None]
  - URINARY TRACT INFECTION [None]
  - VISUAL FIELD DEFECT [None]
  - WHITE BLOOD CELL COUNT INCREASED [None]
